FAERS Safety Report 7901373-5 (Version None)
Quarter: 2011Q4

REPORT INFORMATION
  Report Type: 
  Country: None (occurrence: None)
  Receive Date: 20111108
  Receipt Date: 20111028
  Transmission Date: 20120403
  Serious: Yes (Other)
  Sender: FDA-Public Use
  Company Number: PHHY2011US95673

PATIENT
  Age: 71 Year
  Sex: Female

DRUGS (2)
  1. AMLODIPINE [Suspect]
  2. ENALAPRIL MALEATE [Concomitant]

REACTIONS (10)
  - BLISTER [None]
  - PRURITUS [None]
  - URTICARIA [None]
  - OROPHARYNGEAL BLISTERING [None]
  - HYPERTENSION [None]
  - RASH MACULO-PAPULAR [None]
  - SKIN EXFOLIATION [None]
  - CORNEAL EXFOLIATION [None]
  - TOXIC EPIDERMAL NECROLYSIS [None]
  - PAIN [None]
